FAERS Safety Report 25793562 (Version 1)
Quarter: 2025Q3

REPORT INFORMATION
  Report Type: Spontaneous
  Country: US (occurrence: US)
  Receive Date: 20250912
  Receipt Date: 20250912
  Transmission Date: 20251021
  Serious: No
  Sender: SANDOZ
  Company Number: US-002147023-NVSC2024US194786

PATIENT
  Age: 24 Year
  Sex: Male

DRUGS (2)
  1. METFORMIN [Suspect]
     Active Substance: METFORMIN HYDROCHLORIDE
     Indication: Type 2 diabetes mellitus
     Route: 065
  2. VALSARTAN [Suspect]
     Active Substance: VALSARTAN
     Indication: Hypertension
     Route: 065

REACTIONS (4)
  - Anxiety [Unknown]
  - Renal disorder [Unknown]
  - Proteinuria [Unknown]
  - Weight decreased [Unknown]
